FAERS Safety Report 7497271-4 (Version None)
Quarter: 2011Q2

REPORT INFORMATION
  Report Type: 
  Country: None (occurrence: None)
  Receive Date: 20110523
  Receipt Date: 20110510
  Transmission Date: 20111010
  Serious: Yes (Hospitalization, Other)
  Sender: FDA-Public Use
  Company Number: PHEH2010US03468

PATIENT
  Sex: Male

DRUGS (1)
  1. AREDIA [Suspect]
     Dosage: 90 MG, QMO
     Dates: start: 19970827, end: 20021010

REACTIONS (12)
  - LUMBAR SPINAL STENOSIS [None]
  - ATELECTASIS [None]
  - ANKYLOSING SPONDYLITIS [None]
  - INTERVERTEBRAL DISC DEGENERATION [None]
  - KYPHOSIS [None]
  - DEPRESSION [None]
  - BACK PAIN [None]
  - SCOLIOSIS [None]
  - PROCEDURAL PAIN [None]
  - WEIGHT DECREASED [None]
  - HYPOAESTHESIA [None]
  - WEIGHT INCREASED [None]
